FAERS Safety Report 7512352-4 (Version None)
Quarter: 2011Q2

REPORT INFORMATION
  Report Type: 
  Country: None (occurrence: None)
  Receive Date: 20110520
  Receipt Date: 20110510
  Transmission Date: 20111010
  Serious: Yes (Death)
  Sender: FDA-Public Use
  Company Number: 1000020072

PATIENT
  Age: 82 Year
  Sex: Male
  Weight: 76 kg

DRUGS (7)
  1. LEVOTHYROXINE (LEVOTHYROXINE SODIUM)(LEVOTHYROXIN SODIUM) [Concomitant]
  2. SYMBICORT(BUDESONIDE, FORMOTEROL FUMARATE)(BUDESONIDE, FORMOTEROL FUMA [Concomitant]
  3. ROFLUMILAST (ROFLUMILAST) (TABLETS) [Suspect]
     Indication: CHRONIC OBSTRUCTIVE PULMONARY DISEASE
     Dosage: 500 MCG (500 MCG, 1 IN 1 D),ORAL
     Route: 048
     Dates: start: 20110207
  4. EUPHYLONG (THEOPHYLLINE) (THEOPHYLLINE) [Concomitant]
  5. RAMIPRIL [Concomitant]
  6. SPIRIVA (TIOTROPIUM BROMIDE)(TIOTROPIUM BROMIDE) [Concomitant]
  7. TORASEMIDE (TORASEMIDE)(TORASEMIDE) [Concomitant]

REACTIONS (1)
  - CARDIAC FAILURE [None]
